FAERS Safety Report 4555848-X (Version None)
Quarter: 2005Q1

REPORT INFORMATION
  Report Type: 
  Country: None (occurrence: None)
  Receive Date: 20050118
  Receipt Date: 20040819
  Transmission Date: 20050727
  Serious: Yes (Hospitalization)
  Sender: FDA-Public Use
  Company Number: A001-002006185

PATIENT
  Age: 84 Year
  Sex: Female
  Weight: 66 kg

DRUGS (2)
  1. ARICEPT [Suspect]
     Indication: AMNESIA
     Dosage: 5 MG, 1 IN 1 D, ORAL
     Route: 048
     Dates: start: 20040701, end: 20040817
  2. UNSPECIFIED HYPERTENSION MEDICATIONS [Concomitant]

REACTIONS (4)
  - FLUSHING [None]
  - HEADACHE [None]
  - HYPOAESTHESIA ORAL [None]
  - MUSCLE SPASMS [None]
